FAERS Safety Report 5983993-0 (Version None)
Quarter: 2008Q4

REPORT INFORMATION
  Report Type: 
  Country: None (occurrence: None)
  Receive Date: 20081126
  Receipt Date: 20080303
  Transmission Date: 20090506
  Serious: Yes (Other)
  Sender: FDA-Public Use
  Company Number: 2008BH001912

PATIENT
  Sex: Male

DRUGS (1)
  1. DIANEAL [Suspect]
     Indication: PERITONEAL DIALYSIS
     Dosage: UNK; IP
     Route: 033

REACTIONS (4)
  - CATHETER RELATED COMPLICATION [None]
  - MUSCLE SPASMS [None]
  - PERITONITIS BACTERIAL [None]
  - PROCEDURAL PAIN [None]
